FAERS Safety Report 25847050 (Version 1)
Quarter: 2025Q3

REPORT INFORMATION
  Report Type: Spontaneous
  Country: US (occurrence: None)
  Receive Date: 20250923
  Receipt Date: 20250923
  Transmission Date: 20251021
  Serious: Yes (Hospitalization)
  Sender: FDA-CTU
  Company Number: None

PATIENT
  Sex: Female

DRUGS (1)
  1. FULPHILA [Suspect]
     Active Substance: PEGFILGRASTIM-JMDB
     Indication: B-cell lymphoma
     Route: 058
     Dates: start: 20250523

REACTIONS (3)
  - Pyrexia [None]
  - Extra dose administered [None]
  - Product communication issue [None]
